FAERS Safety Report 6233658-5 (Version None)
Quarter: 2009Q2

REPORT INFORMATION
  Report Type: 
  Country: None (occurrence: None)
  Receive Date: 20090612
  Receipt Date: 20090602
  Transmission Date: 20091009
  Serious: Yes (Other)
  Sender: FDA-Public Use
  Company Number: 1000006036

PATIENT
  Age: 24 Year
  Sex: Male

DRUGS (6)
  1. ESCITALOPRAM [Suspect]
     Indication: PANIC DISORDER
     Dosage: 15 MG (15 MG, 1 IN 1 D), ORAL, 5 MG (5 MG, 1 IN 1 D), ORAL, 10 MG (10 MG, 1 IN 1 D), ORAL
     Route: 048
     Dates: start: 20090317, end: 20090321
  2. ESCITALOPRAM [Suspect]
     Indication: PANIC DISORDER
     Dosage: 15 MG (15 MG, 1 IN 1 D), ORAL, 5 MG (5 MG, 1 IN 1 D), ORAL, 10 MG (10 MG, 1 IN 1 D), ORAL
     Route: 048
     Dates: start: 20090322, end: 20090403
  3. ESCITALOPRAM [Suspect]
     Indication: PANIC DISORDER
     Dosage: 15 MG (15 MG, 1 IN 1 D), ORAL, 5 MG (5 MG, 1 IN 1 D), ORAL, 10 MG (10 MG, 1 IN 1 D), ORAL
     Route: 048
     Dates: start: 20090404
  4. XANOR (TABLETS) [Concomitant]
  5. XANOR (TABLETS) [Concomitant]
  6. PROPRAL (TABLETS) [Concomitant]

REACTIONS (1)
  - HYPERBILIRUBINAEMIA [None]
